FAERS Safety Report 9265066 (Version 1)
Quarter: 2013Q2

REPORT INFORMATION
  Report Type: Spontaneous
  Country: NL (occurrence: None)
  Receive Date: 20130429
  Receipt Date: 20130429
  Transmission Date: 20140414
  Serious: Yes (Death, Hospitalization, Other)
  Sender: FDA-Public Use
  Company Number: SYM-2013-03067

PATIENT
  Age: 58 Year
  Sex: Female

DRUGS (11)
  1. METRONIDAZOLE [Suspect]
     Indication: RETROPERITONEAL ABSCESS
  2. CEFUROXIME [Suspect]
     Indication: RETROPERITONEAL ABSCESS
  3. CIPROFLOXACIN [Suspect]
     Indication: RETROPERITONEAL ABSCESS
  4. PIPERACILLIN\TAZOBACTAM [Suspect]
     Indication: RETROPERITONEAL ABSCESS
  5. AMOXICILLIN [Suspect]
     Indication: RETROPERITONEAL ABSCESS
  6. LINEZOLID [Suspect]
     Indication: RETROPERITONEAL ABSCESS
  7. SULFAMETHOXAZOLE\TRIMETHOPRIM [Suspect]
     Indication: RETROPERITONEAL ABSCESS
  8. HEPARIN [Suspect]
     Indication: ANTICOAGULANT THERAPY
  9. TAZOBACTAM [Suspect]
     Indication: RETROPERITONEAL ABSCESS
  10. VANCOMYCIN [Suspect]
     Indication: RETROPERITONEAL ABSCESS
  11. CASPOFUNGIN [Suspect]
     Indication: ASPERGILLUS INFECTION

REACTIONS (16)
  - Drug reaction with eosinophilia and systemic symptoms [None]
  - Cerebral haemorrhage [None]
  - Hypotension [None]
  - Respiratory failure [None]
  - Haemoglobin decreased [None]
  - Haematocrit decreased [None]
  - Renal failure [None]
  - Metabolic acidosis [None]
  - CD8 lymphocytes decreased [None]
  - CD4/CD8 ratio increased [None]
  - Septic shock [None]
  - Pneumonia [None]
  - Continuous haemodiafiltration [None]
  - Unresponsive to stimuli [None]
  - Multi-organ disorder [None]
  - Drug hypersensitivity [None]
